FAERS Safety Report 11312243 (Version 1)
Quarter: 2015Q3

REPORT INFORMATION
  Report Type: Spontaneous
  Country: RU (occurrence: RU)
  Receive Date: 20150727
  Receipt Date: 20150727
  Transmission Date: 20151125
  Serious: Yes (Hospitalization)
  Sender: FDA-Public Use
  Company Number: CHPA2015RU008700

PATIENT
  Sex: Female

DRUGS (1)
  1. THERAFLU ACETAM/PHENIR/PHENEPH [Suspect]
     Active Substance: ACETAMINOPHEN\PHENIRAMINE MALEATE\PHENYLEPHRINE HYDROCHLORIDE
     Indication: NASOPHARYNGITIS
     Dosage: UNK
     Route: 048

REACTIONS (1)
  - Anaphylactic shock [Unknown]
